FAERS Safety Report 9706438 (Version 4)
Quarter: 2014Q1

REPORT INFORMATION
  Report Type: Report from Study
  Country: CA (occurrence: CA)
  Receive Date: 20131125
  Receipt Date: 20140131
  Transmission Date: 20141002
  Serious: Yes (Other)
  Sender: FDA-Public Use
  Company Number: CA-ROCHE-1231874

PATIENT
  Age: 65 Year
  Sex: Female
  Weight: 99.8 kg

DRUGS (17)
  1. ACTEMRA [Suspect]
     Indication: RHEUMATOID ARTHRITIS
     Route: 042
     Dates: start: 20130501
  2. ELAVIL (CANADA) [Suspect]
     Indication: PRODUCT USED FOR UNKNOWN INDICATION
     Route: 065
  3. ATENOLOL [Concomitant]
  4. METHOTREXATE [Concomitant]
  5. PLAQUENIL [Concomitant]
  6. SALBUTAMOL INHALER [Concomitant]
  7. MELOXICAM [Concomitant]
  8. TYLENOL ARTHRITIS [Concomitant]
  9. AMITRIPTYLINE [Concomitant]
  10. ACCUPRIL [Concomitant]
  11. MACROBID [Concomitant]
  12. OXYCONTIN [Concomitant]
  13. VAGIFEM [Concomitant]
  14. OMEGA 3 [Concomitant]
  15. VITAMIN C [Concomitant]
  16. FOLIC ACID [Concomitant]
  17. CARBAMAZEPINE [Concomitant]

REACTIONS (18)
  - Herpes ophthalmic [Not Recovered/Not Resolved]
  - Polyp [Unknown]
  - Fungal infection [Unknown]
  - Arthralgia [Recovering/Resolving]
  - Headache [Recovered/Resolved]
  - Platelet count increased [Not Recovered/Not Resolved]
  - Joint swelling [Recovering/Resolving]
  - Fatigue [Recovered/Resolved]
  - Agitation [Recovered/Resolved]
  - Sleep disorder [Recovered/Resolved]
  - Psoriasis [Unknown]
  - Discomfort [Not Recovered/Not Resolved]
  - Crystal urine present [Unknown]
  - White blood cells urine [Unknown]
  - Urinary incontinence [Unknown]
  - Arthralgia [Unknown]
  - Local swelling [Unknown]
  - Drug ineffective [Unknown]
